FAERS Safety Report 4483552-5 (Version None)
Quarter: 2004Q4

REPORT INFORMATION
  Report Type: 
  Country: None (occurrence: None)
  Receive Date: 20041021
  Receipt Date: 20041021
  Transmission Date: 20050328
  Serious: Yes (Hospitalization)
  Sender: FDA-Public Use
  Company Number: None

PATIENT
  Age: 56 Year
  Sex: Female
  Weight: 58.0604 kg

DRUGS (2)
  1. PREMPRO [Suspect]
     Indication: HORMONE REPLACEMENT THERAPY
     Dosage: ONCE A DAY FOR MENOPAUSAL SYMPTOMS
     Dates: start: 20020115, end: 20020214
  2. PREMPRO [Suspect]
     Indication: MENOPAUSE
     Dosage: ONCE A DAY FOR MENOPAUSAL SYMPTOMS
     Dates: start: 20020115, end: 20020214

REACTIONS (1)
  - CEREBROVASCULAR ACCIDENT [None]
